FAERS Safety Report 6554129-2 (Version None)
Quarter: 2010Q1

REPORT INFORMATION
  Report Type: 
  Country: None (occurrence: None)
  Receive Date: 20100127
  Receipt Date: 20100120
  Transmission Date: 20100710
  Serious: Yes (Hospitalization)
  Sender: FDA-Public Use
  Company Number: JP-ROCHE-668210

PATIENT
  Age: 60 Year
  Sex: Male
  Weight: 80 kg

DRUGS (9)
  1. TOCILIZUMAB [Suspect]
     Indication: RHEUMATOID ARTHRITIS
     Route: 041
     Dates: start: 20090910, end: 20090910
  2. TOCILIZUMAB [Suspect]
     Route: 041
     Dates: start: 20091008, end: 20091008
  3. ISCOTIN [Suspect]
     Indication: ANTIBIOTIC PROPHYLAXIS
     Dosage: FORM REPORTED AS ORAL FORMULATION
     Route: 048
     Dates: start: 20090821
  4. LOXONIN [Suspect]
     Indication: RHEUMATOID ARTHRITIS
     Route: 048
  5. PREDNISOLONE [Concomitant]
     Dosage: DOSE FORM: ORAL FORMULATION (NOT OTHERWISE SPECIFIED)
     Route: 048
     Dates: start: 20060101
  6. PARIET [Concomitant]
     Route: 048
  7. SELBEX [Concomitant]
     Dosage: DOSE FORM: ORAL FORMULATION (NOT OTHERWISE SPECIFIED)
     Route: 048
  8. MICARDIS [Concomitant]
     Route: 048
  9. GLAKAY [Concomitant]
     Route: 048

REACTIONS (2)
  - COMPLEMENT FACTOR DECREASED [None]
  - GLOMERULONEPHRITIS ACUTE [None]
